FAERS Safety Report 8483948-0 (Version None)
Quarter: 2012Q3

REPORT INFORMATION
  Report Type: 
  Country: None (occurrence: None)
  Receive Date: 20120703
  Receipt Date: 20120625
  Transmission Date: 20120928
  Serious: Yes (Other)
  Sender: FDA-Public Use
  Company Number: US-PFIZER INC-2012153193

PATIENT
  Sex: Male
  Weight: 125 kg

DRUGS (4)
  1. DDAVP [Concomitant]
     Indication: INCONTINENCE
     Dosage: 0.2 MG, 2 TABS AT BEDTIME
  2. CLOZAPINE [Concomitant]
     Dosage: 300 MG, AT BEDTIME
  3. EFFEXOR XR [Suspect]
     Dosage: 225 MG, AT BEDTIME
  4. METFORMIN HYDROCHLORIDE [Concomitant]
     Dosage: 500 MG, 1X/DAY

REACTIONS (1)
  - SLEEP APNOEA SYNDROME [None]
